FAERS Safety Report 22114023 (Version 1)
Quarter: 2023Q1

REPORT INFORMATION
  Report Type: Spontaneous
  Country: GB (occurrence: GB)
  Receive Date: 20230320
  Receipt Date: 20230320
  Transmission Date: 20230417
  Serious: Yes (Other)
  Sender: FDA-Public Use
  Company Number: None

PATIENT
  Age: 1 Year
  Sex: Female
  Weight: 9 kg

DRUGS (3)
  1. AMOXICILLIN [Suspect]
     Active Substance: AMOXICILLIN
     Indication: Ill-defined disorder
     Dosage: 1X5ML SPOON 3 TIMES/DAY
     Dates: start: 20230307
  2. AMOXICILLIN [Suspect]
     Active Substance: AMOXICILLIN
     Dates: start: 20230310
  3. ERYTHROMYCIN ETHYLSUCCINATE [Concomitant]
     Active Substance: ERYTHROMYCIN ETHYLSUCCINATE
     Indication: Ill-defined disorder
     Dosage: 1X5ML SPOON 4 TIMES/DAY
     Dates: start: 20230309

REACTIONS (3)
  - Pharyngeal swelling [Recovered/Resolved]
  - Urticaria [Recovered/Resolved]
  - Vomiting [Recovered/Resolved]

NARRATIVE: CASE EVENT DATE: 20230310
